FAERS Safety Report 8666480 (Version 2)
Quarter: 2012Q4

REPORT INFORMATION
  Report Type: 
  Country: US (occurrence: US)
  Receive Date: 20120716
  Receipt Date: 20121127
  Transmission Date: 20130627
  Serious: Yes (Other)
  Sender: FDA-Public Use
  Company Number: US-ROCHE-1066819

PATIENT
  Sex: Male
  Weight: 79.45 kg

DRUGS (6)
  1. ACCUTANE [Suspect]
     Indication: ACNE
     Route: 048
     Dates: start: 19981117, end: 19981216
  2. ACCUTANE [Suspect]
     Route: 048
     Dates: start: 19990210, end: 19990410
  3. ACCUTANE [Suspect]
     Route: 048
     Dates: start: 19990510, end: 19990625
  4. ACCUTANE [Suspect]
     Route: 048
     Dates: start: 200008
  5. TETRACYCLINE [Concomitant]
     Indication: ROSACEA
     Route: 065
  6. METROGEL [Concomitant]
     Indication: ROSACEA

REACTIONS (5)
  - Colitis ulcerative [Unknown]
  - Inflammatory bowel disease [Unknown]
  - Emotional distress [Unknown]
  - Rectal abscess [Unknown]
  - Small intestinal obstruction [Unknown]
